FAERS Safety Report 18697518 (Version 2)
Quarter: 2021Q1

REPORT INFORMATION
  Report Type: Report from Study
  Country: CO (occurrence: CO)
  Receive Date: 20210105
  Receipt Date: 20210107
  Transmission Date: 20210419
  Serious: Yes (Death, Hospitalization)
  Sender: FDA-Public Use
  Company Number: CO-JNJFOC-20201247811

PATIENT
  Age: 69 Year
  Sex: Male
  Weight: 50 kg

DRUGS (1)
  1. DARZALEX [Suspect]
     Active Substance: DARATUMUMAB
     Indication: PLASMA CELL MYELOMA
     Dosage: WEEKLY
     Route: 042
     Dates: start: 20201222, end: 20210101

REACTIONS (7)
  - Death [Fatal]
  - Haemodynamic instability [Not Recovered/Not Resolved]
  - Oxygen saturation decreased [Not Recovered/Not Resolved]
  - Dyspnoea [Recovered/Resolved]
  - Hypertension [Recovered/Resolved]
  - Pain [Not Recovered/Not Resolved]
  - Infusion related reaction [Recovered/Resolved]

NARRATIVE: CASE EVENT DATE: 202012
